FAERS Safety Report 9852215 (Version 2)
Quarter: 2014Q2

REPORT INFORMATION
  Report Type: Spontaneous
  Country: US (occurrence: None)
  Receive Date: 20140127
  Receipt Date: 20140401
  Transmission Date: 20141212
  Serious: Yes (Hospitalization, Other)
  Sender: FDA-Public Use
  Company Number: 2013-US-004006

PATIENT
  Age: 27 Year
  Sex: Female

DRUGS (1)
  1. XYREM (SODIUM OXYBATE) ORAL SOLUTION, 500MG/ML [Suspect]
     Indication: NARCOLEPSY
     Route: 048
     Dates: start: 200707

REACTIONS (5)
  - Agoraphobia [None]
  - Anxiety [None]
  - Obsessive-compulsive disorder [None]
  - Depression [None]
  - Drug hypersensitivity [None]
